FAERS Safety Report 12094643 (Version 2)
Quarter: 2016Q1

REPORT INFORMATION
  Report Type: Report from Study
  Country: GB (occurrence: GB)
  Receive Date: 20160219
  Receipt Date: 20160311
  Transmission Date: 20160526
  Serious: Yes (Other)
  Sender: FDA-Public Use
  Company Number: GB-JNJFOC-20160119426

PATIENT
  Age: 49 Year
  Sex: Female
  Weight: 99 kg

DRUGS (9)
  1. DOXAZOSIN [Concomitant]
     Active Substance: DOXAZOSIN\DOXAZOSIN MESYLATE
     Dosage: ONE DAILY AT NIGHT
     Route: 065
     Dates: end: 20160223
  2. RAMIPRIL. [Concomitant]
     Active Substance: RAMIPRIL
     Route: 065
     Dates: end: 20160223
  3. INFLUENZA VACCINE [Concomitant]
     Active Substance: INFLUENZA VIRUS VACCINE
     Dosage: DOSAGE: AS DIRECTED. 15 MICROGRAM STRAIN SUSPENSION FOR INJECTION 0.1ML PREFILLED SYRINGES
     Route: 065
  4. STELARA [Suspect]
     Active Substance: USTEKINUMAB
     Indication: PSORIASIS
     Route: 058
     Dates: start: 20131031
  5. BENDROFLUMETHIAZIDE [Concomitant]
     Active Substance: BENDROFLUMETHIAZIDE
     Dosage: ONE EVERY MORNING
     Route: 065
     Dates: end: 20160223
  6. FLUTICASONE W/SALMETEROL [Concomitant]
     Active Substance: FLUTICASONE PROPIONATE\SALMETEROL XINAFOATE
     Route: 065
     Dates: end: 20160118
  7. AMLODIPINE [Concomitant]
     Active Substance: AMLODIPINE BESYLATE
     Dosage: ONE IN THE MORNING
     Route: 065
     Dates: end: 20160223
  8. VENTOLIN [Concomitant]
     Active Substance: ALBUTEROL SULFATE
     Dosage: INHALES TWO DOSES AS NEEDED.
     Route: 065
     Dates: end: 20160118
  9. CAPASAL [Concomitant]
     Dosage: TO WASH OFF IN THE MORNING AS DIRECTED.
     Route: 065
     Dates: end: 20160118

REACTIONS (4)
  - Nasopharyngitis [Unknown]
  - Lower respiratory tract infection [Recovered/Resolved]
  - Drug effect decreased [Unknown]
  - Cough [Unknown]

NARRATIVE: CASE EVENT DATE: 201601
